FAERS Safety Report 9194338 (Version 3)
Quarter: 2013Q2

REPORT INFORMATION
  Report Type: Spontaneous
  Country: US (occurrence: US)
  Receive Date: 20130326
  Receipt Date: 20130409
  Transmission Date: 20140414
  Serious: Yes (Hospitalization, Other)
  Sender: FDA-Public Use
  Company Number: US-RB-051552-13

PATIENT
  Sex: Female

DRUGS (3)
  1. MUCINEX DM [Suspect]
     Indication: NASAL CONGESTION
     Dosage: TOOK ONE TABLET
     Route: 048
     Dates: start: 20130311
  2. MUCINEX DM [Suspect]
     Indication: NASAL CONGESTION
     Dosage: TOOK ONE TABLET
     Route: 048
     Dates: start: 20130311
  3. CORICIDIN [Concomitant]
     Indication: PRODUCT USED FOR UNKNOWN INDICATION

REACTIONS (7)
  - Pneumonia [Not Recovered/Not Resolved]
  - Syncope [Unknown]
  - Cold sweat [Unknown]
  - Dizziness [Unknown]
  - Vomiting [Unknown]
  - Dizziness [Unknown]
  - Malaise [Unknown]
